FAERS Safety Report 13839362 (Version 1)
Quarter: 2017Q3

REPORT INFORMATION
  Report Type: Spontaneous
  Country: US (occurrence: US)
  Receive Date: 20170805
  Receipt Date: 20170805
  Transmission Date: 20171127
  Serious: No
  Sender: FDA-Public Use
  Company Number: None

PATIENT
  Age: 59 Year
  Sex: Male

DRUGS (28)
  1. DIPHENHYDRAMINE. [Concomitant]
     Active Substance: DIPHENHYDRAMINE
  2. GLUTAMINE [Concomitant]
     Active Substance: GLUTAMINE
  3. LORAZAPAM [Concomitant]
     Active Substance: LORAZEPAM
  4. MUPIROCIN. [Concomitant]
     Active Substance: MUPIROCIN
  5. OXYCODONE ER [Concomitant]
     Active Substance: OXYCODONE
  6. SODIUM CHLORIDE. [Concomitant]
     Active Substance: SODIUM CHLORIDE
  7. URSODIAL [Concomitant]
  8. FLUCONAZOLE. [Concomitant]
     Active Substance: FLUCONAZOLE
  9. PHYTONADIONE. [Concomitant]
     Active Substance: PHYTONADIONE
  10. ACYCLOVIR. [Concomitant]
     Active Substance: ACYCLOVIR
  11. FLUORIDE [Concomitant]
     Active Substance: SODIUM FLUORIDE
  12. PROCHLORPERAZINE. [Concomitant]
     Active Substance: PROCHLORPERAZINE
  13. TAMSULOSIN [Concomitant]
     Active Substance: TAMSULOSIN
  14. CHLORHEXADINE [Concomitant]
     Active Substance: CHLORHEXIDINE
  15. DIPHENOXYLATE/ATROPINE [Concomitant]
     Active Substance: ATROPINE\DIPHENOXYLATE
  16. LOPERAMIDE [Concomitant]
     Active Substance: LOPERAMIDE
  17. ONDANSETRON [Concomitant]
     Active Substance: ONDANSETRON
  18. SODIUM CHLORIDE NASAL SPRAY [Concomitant]
  19. HYDROCORTISONE. [Concomitant]
     Active Substance: HYDROCORTISONE
  20. TACROLIMUS. [Concomitant]
     Active Substance: TACROLIMUS
  21. TACROLIMUS. [Suspect]
     Active Substance: TACROLIMUS
     Indication: PROPHYLAXIS AGAINST GRAFT VERSUS HOST DISEASE
     Route: 048
     Dates: start: 20170419, end: 20170421
  22. ALLOPURINOL. [Concomitant]
     Active Substance: ALLOPURINOL
  23. CEFEPIME [Concomitant]
     Active Substance: CEFEPIME HYDROCHLORIDE
  24. OLANZAPINE. [Concomitant]
     Active Substance: OLANZAPINE
  25. OXYCODONE [Concomitant]
     Active Substance: OXYCODONE
  26. OXYMETAZOLINE [Concomitant]
     Active Substance: OXYMETAZOLINE
  27. SULFAMETHOXAZOLE/TRIMETHOPRIM [Concomitant]
     Active Substance: SULFAMETHOXAZOLE\TRIMETHOPRIM
  28. VENLAFAXINE [Concomitant]
     Active Substance: VENLAFAXINE HYDROCHLORIDE

REACTIONS (2)
  - Blood creatinine increased [None]
  - Mental status changes [None]

NARRATIVE: CASE EVENT DATE: 20170421
